FAERS Safety Report 6768116-2 (Version None)
Quarter: 2010Q2

REPORT INFORMATION
  Report Type: 
  Country: None (occurrence: None)
  Receive Date: 20100614
  Receipt Date: 20100601
  Transmission Date: 20101027
  Serious: Yes (Hospitalization, Disabling, Other)
  Sender: FDA-Public Use
  Company Number: PHHY2010AT38188

PATIENT
  Age: 67 Year
  Sex: Male

DRUGS (3)
  1. GLEEVEC [Suspect]
     Indication: CHRONIC MYELOID LEUKAEMIA
     Dosage: 400 MG, DAILY
     Route: 048
  2. GLEEVEC [Suspect]
     Dosage: 600 MG DAILY
  3. GLEEVEC [Suspect]
     Dosage: UNK
     Route: 048

REACTIONS (3)
  - NEOPLASM MALIGNANT [None]
  - NEPHRECTOMY [None]
  - RENAL CELL CARCINOMA [None]
